FAERS Safety Report 9863815 (Version 1)
Quarter: 2014Q1

REPORT INFORMATION
  Report Type: Spontaneous
  Country: IT (occurrence: IT)
  Receive Date: 20140203
  Receipt Date: 20140203
  Transmission Date: 20141002
  Serious: Yes (Hospitalization)
  Sender: FDA-Public Use
  Company Number: IT-BRISTOL-MYERS SQUIBB COMPANY-20069647

PATIENT
  Age: 70 Year
  Sex: Male

DRUGS (1)
  1. COUMADIN TABS 5 MG [Suspect]
     Indication: ATRIAL FIBRILLATION
     Dosage: 1DF:1UNIT
     Route: 048
     Dates: start: 20110101, end: 20131205

REACTIONS (8)
  - Septic shock [Recovered/Resolved]
  - Blood calcitonin increased [Recovered/Resolved]
  - Retroperitoneal haematoma [Recovered/Resolved]
  - Suprapubic pain [Recovered/Resolved]
  - International normalised ratio increased [Recovered/Resolved]
  - Overdose [Unknown]
  - Diarrhoea [Recovered/Resolved]
  - Renal failure [Recovered/Resolved]
